FAERS Safety Report 10229744 (Version 2)
Quarter: 2014Q2

REPORT INFORMATION
  Report Type: Report from Study
  Country: US (occurrence: US)
  Receive Date: 20140611
  Receipt Date: 20140611
  Transmission Date: 20141212
  Serious: Yes (Hospitalization)
  Sender: FDA-Public Use
  Company Number: PHEH2012US011227

PATIENT
  Age: 56 Year
  Sex: Female

DRUGS (1)
  1. GLEEVEC [Suspect]
     Indication: CHRONIC MYELOID LEUKAEMIA
     Dosage: 400 MG, QD
     Route: 048

REACTIONS (8)
  - Fistula [Unknown]
  - Cystitis [Unknown]
  - Diverticulitis [Unknown]
  - Muscle strain [Unknown]
  - Dysuria [Unknown]
  - Painful defaecation [Unknown]
  - Abdominal pain lower [Unknown]
  - Urinary tract infection [Unknown]
